FAERS Safety Report 16313253 (Version 3)
Quarter: 2025Q4

REPORT INFORMATION
  Report Type: Spontaneous
  Country: EU (occurrence: EU)
  Receive Date: 20190515
  Receipt Date: 20251007
  Transmission Date: 20260117
  Serious: Yes (Death, Life-Threatening, Hospitalization, Other)
  Sender: ACCORD
  Company Number: EU-ACCORD-126910

PATIENT
  Age: 61 Year
  Sex: Male

DRUGS (2)
  1. CAPECITABINE [Interacting]
     Active Substance: CAPECITABINE
     Indication: Adenocarcinoma gastric
     Dosage: 2 CYCLE
  2. BRIVUDINE [Interacting]
     Active Substance: BRIVUDINE
     Indication: Herpes zoster

REACTIONS (6)
  - Herpes zoster [Unknown]
  - Pancytopenia [Fatal]
  - Bronchopulmonary aspergillosis [Fatal]
  - Drug interaction [Fatal]
  - Systemic toxicity [Fatal]
  - Disseminated aspergillosis [Fatal]
